FAERS Safety Report 7751179-5 (Version None)
Quarter: 2011Q3

REPORT INFORMATION
  Report Type: 
  Country: None (occurrence: None)
  Receive Date: 20110914
  Receipt Date: 20070824
  Transmission Date: 20111222
  Serious: Yes (Hospitalization)
  Sender: FDA-Public Use
  Company Number: PHHY2007NL03752

PATIENT
  Sex: Female

DRUGS (2)
  1. SANDOSTATIN LAR [Suspect]
     Dosage: 20 MG, ADMINISTERED ONCE PER 4 WEEKS.
     Dates: start: 20060313
  2. SANDOSTATIN LAR [Suspect]
     Dosage: 20 MG, ADMINISTERED ONCE PER 4 WEEKS.
     Dates: start: 20070730

REACTIONS (1)
  - CEREBROVASCULAR ACCIDENT [None]
